FAERS Safety Report 8549193-5 (Version None)
Quarter: 2012Q3

REPORT INFORMATION
  Report Type: 
  Country: None (occurrence: None)
  Receive Date: 20120730
  Receipt Date: 20120725
  Transmission Date: 20120928
  Serious: Yes (Hospitalization)
  Sender: FDA-Public Use
  Company Number: US-TEVA-350463USA

PATIENT
  Sex: Female

DRUGS (1)
  1. GLIMEPIRIDE [Suspect]
     Indication: PRODUCT USED FOR UNKNOWN INDICATION
     Dosage: TOOK FOR APPROX 3 DAYS

REACTIONS (5)
  - DIZZINESS [None]
  - NAUSEA [None]
  - ABDOMINAL PAIN UPPER [None]
  - HEART RATE INCREASED [None]
  - MALAISE [None]
